FAERS Safety Report 9335092 (Version 2)
Quarter: 2013Q4

REPORT INFORMATION
  Report Type: Spontaneous
  Country: US (occurrence: US)
  Receive Date: 20130606
  Receipt Date: 20131008
  Transmission Date: 20140711
  Serious: No
  Sender: FDA-Public Use
  Company Number: US-AMGEN-USASP2013036036

PATIENT
  Age: 75 Year
  Sex: Female
  Weight: 46 kg

DRUGS (9)
  1. PROLIA [Suspect]
     Indication: OSTEOPENIA
     Dosage: 60 MG, Q6MO
     Route: 058
     Dates: start: 20121218
  2. CARVEDILOL [Concomitant]
  3. DIGOXIN [Concomitant]
  4. LOSARTAN [Concomitant]
  5. PREMARIN [Concomitant]
  6. ZYRTEC [Concomitant]
  7. CITRACAL + D                       /01606701/ [Concomitant]
  8. LASIX                              /00032601/ [Concomitant]
  9. NASONEX [Concomitant]

REACTIONS (6)
  - Spinal pain [Not Recovered/Not Resolved]
  - Muscle tightness [Unknown]
  - Pain [Unknown]
  - Laceration [Recovering/Resolving]
  - Wound infection [Recovering/Resolving]
  - Back pain [Unknown]
